FAERS Safety Report 11663116 (Version 1)
Quarter: 2015Q4

REPORT INFORMATION
  Report Type: Spontaneous
  Country: US (occurrence: US)
  Receive Date: 20151027
  Receipt Date: 20151027
  Transmission Date: 20160304
  Serious: No
  Sender: FDA-Public Use
  Company Number: US-MEDA-2011030057

PATIENT

DRUGS (1)
  1. XERESE [Suspect]
     Active Substance: ACYCLOVIR\HYDROCORTISONE
     Dosage: 5%/1%
     Route: 061

REACTIONS (1)
  - Application site pain [Recovered/Resolved]
